FAERS Safety Report 25505936 (Version 1)
Quarter: 2025Q3

REPORT INFORMATION
  Report Type: Spontaneous
  Country: JO (occurrence: JO)
  Receive Date: 20250702
  Receipt Date: 20250702
  Transmission Date: 20251021
  Serious: Yes (Other)
  Sender: MERCK SHARP & DOHME LLC
  Company Number: JO-009507513-2297625

PATIENT
  Age: 67 Year
  Sex: Female

DRUGS (1)
  1. PEMBROLIZUMAB [Suspect]
     Active Substance: PEMBROLIZUMAB
     Indication: Hodgkin^s disease mixed cellularity stage IV
     Dosage: 200 MILLIGRAM EVERY THREE WEEKS
     Route: 042

REACTIONS (2)
  - Tumour pseudoprogression [Recovered/Resolved]
  - Tumour pseudoprogression [Recovered/Resolved]
